FAERS Safety Report 7706147-6 (Version None)
Quarter: 2011Q3

REPORT INFORMATION
  Report Type: 
  Country: None (occurrence: None)
  Receive Date: 20110824
  Receipt Date: 20110811
  Transmission Date: 20111222
  Serious: No
  Sender: FDA-Public Use
  Company Number: US-B.I. PHARMACEUTICALS,INC./RIDGEFIELD-2011-BP-19796BP

PATIENT
  Sex: Female

DRUGS (3)
  1. SPIRONOLACTONE [Concomitant]
     Indication: OEDEMA PERIPHERAL
  2. LASIX [Concomitant]
     Indication: OEDEMA PERIPHERAL
  3. PRADAXA [Suspect]
     Indication: ATRIAL FIBRILLATION
     Dosage: 300 MG
     Route: 048
     Dates: start: 20110810, end: 20110811

REACTIONS (5)
  - OESOPHAGEAL PAIN [None]
  - DYSPEPSIA [None]
  - CHEST DISCOMFORT [None]
  - NAUSEA [None]
  - ABDOMINAL DISCOMFORT [None]
